FAERS Safety Report 6794711-0 (Version None)
Quarter: 2010Q2

REPORT INFORMATION
  Report Type: 
  Country: None (occurrence: None)
  Receive Date: 20100625
  Receipt Date: 20100617
  Transmission Date: 20101027
  Serious: Yes (Hospitalization, Other)
  Sender: FDA-Public Use
  Company Number: CA-SANOFI-AVENTIS-2010SA027162

PATIENT
  Age: 67 Year
  Sex: Male
  Weight: 63.5 kg

DRUGS (7)
  1. DIABETA [Suspect]
     Route: 048
     Dates: start: 20080316, end: 20080319
  2. PREDNISONE [Concomitant]
     Indication: PROSTATE CANCER
     Route: 048
     Dates: start: 20080202
  3. DOCETAXEL [Concomitant]
     Indication: PROSTATE CANCER
     Dosage: DOSE:75 INTERNATIONAL UNIT(S)/MILLILITRE
     Route: 040
     Dates: start: 20080207, end: 20080207
  4. DOCETAXEL [Concomitant]
     Dosage: DOSE:75 INTERNATIONAL UNIT(S)/MILLILITRE
     Route: 040
     Dates: start: 20080228, end: 20080228
  5. TAMSULOSIN HYDROCHLORIDE [Concomitant]
  6. CALCIUM CARBONATE [Concomitant]
  7. GLUCONORM [Concomitant]
     Dates: start: 20080225, end: 20080316

REACTIONS (4)
  - DECREASED APPETITE [None]
  - FALL [None]
  - HYPOGLYCAEMIC UNCONSCIOUSNESS [None]
  - MUSCULAR WEAKNESS [None]
